FAERS Safety Report 17535896 (Version 1)
Quarter: 2020Q1

REPORT INFORMATION
  Report Type: Spontaneous
  Country: CN (occurrence: CN)
  Receive Date: 20200313
  Receipt Date: 20200313
  Transmission Date: 20200409
  Serious: Yes (Other)
  Sender: FDA-Public Use
  Company Number: CN-ROCHE-2561483

PATIENT
  Age: 48 Year
  Sex: Female

DRUGS (9)
  1. CAMRELIZUMAB [Concomitant]
     Active Substance: CAMRELIZUMAB
     Indication: COLON CANCER
     Route: 065
     Dates: start: 20190822
  2. XELODA [Suspect]
     Active Substance: CAPECITABINE
     Indication: COLON CANCER
     Route: 048
     Dates: start: 20150501
  3. IRINOTECAN [Concomitant]
     Active Substance: IRINOTECAN
     Indication: COLON CANCER
     Route: 065
     Dates: start: 201808
  4. AVASTIN [Suspect]
     Active Substance: BEVACIZUMAB
     Indication: COLON CANCER
     Route: 042
     Dates: start: 20150501
  5. RALTITREXED [Concomitant]
     Active Substance: RALTITREXED
     Indication: COLON CANCER
     Route: 065
     Dates: start: 2019
  6. OXALIPLATIN. [Concomitant]
     Active Substance: OXALIPLATIN
     Indication: COLON CANCER
     Route: 065
     Dates: start: 20150501
  7. 5-FLUOROURACIL [FLUOROURACIL] [Concomitant]
     Active Substance: FLUOROURACIL
     Indication: COLON CANCER
     Route: 065
     Dates: start: 201808
  8. REGORAFENIB. [Concomitant]
     Active Substance: REGORAFENIB
     Indication: COLON CANCER
     Route: 065
     Dates: start: 2019
  9. CALCIUM FOLINATE [Concomitant]
     Active Substance: LEUCOVORIN CALCIUM
     Indication: COLON CANCER
     Route: 065
     Dates: start: 201808

REACTIONS (6)
  - Platelet count decreased [Unknown]
  - Gastrointestinal disorder [Unknown]
  - Splenomegaly [Unknown]
  - Anaphylactic shock [Unknown]
  - Tumour pseudoprogression [Unknown]
  - Accessory spleen [Unknown]

NARRATIVE: CASE EVENT DATE: 20160401
